FAERS Safety Report 7133966-X (Version None)
Quarter: 2010Q4

REPORT INFORMATION
  Report Type: 
  Country: None (occurrence: None)
  Receive Date: 20101203
  Receipt Date: 20101123
  Transmission Date: 20110411
  Serious: No
  Sender: FDA-Public Use
  Company Number: US-JNJFOC-20101108183

PATIENT
  Sex: Male
  Weight: 95.26 kg

DRUGS (6)
  1. FENTANYL-100 [Suspect]
     Indication: PAIN
     Dosage: 2 X 100 MCG PATCHES, NDC-0781-7114-55
  2. FENTANYL-100 [Suspect]
     Dosage: NDC-0781-7114-55
  3. FENTANYL-100 [Suspect]
     Dosage: 100 MCG X 2 PATCHES = 200 MCG, NDC-0781-7244-55
     Route: 062
  4. VITAMIN TAB [Concomitant]
     Indication: VITAMIN SUPPLEMENTATION
     Route: 048
  5. VITAMIN B-12 [Concomitant]
     Indication: VITAMIN SUPPLEMENTATION
     Route: 065
  6. HYDROCODONE [Concomitant]
     Indication: BREAKTHROUGH PAIN
     Dosage: 1-3 TABLETS EVERY 6 HOURS
     Route: 048

REACTIONS (3)
  - PAIN [None]
  - PRODUCT ADHESION ISSUE [None]
  - WRONG TECHNIQUE IN DRUG USAGE PROCESS [None]
